FAERS Safety Report 11133567 (Version 2)
Quarter: 2015Q2

REPORT INFORMATION
  Report Type: Spontaneous
  Country: UY (occurrence: UY)
  Receive Date: 20150523
  Receipt Date: 20150529
  Transmission Date: 20150821
  Serious: Yes (Death)
  Sender: FDA-Public Use
  Company Number: UY-BRACCO-000002

PATIENT
  Age: 72 Year
  Sex: Male

DRUGS (3)
  1. IOPAMIRON [Suspect]
     Active Substance: IOPAMIDOL
     Indication: ANGIOGRAM
     Route: 042
     Dates: start: 20150515, end: 20150515
  2. CARVEDILOL. [Concomitant]
     Active Substance: CARVEDILOL
  3. METFORMIN [Concomitant]
     Active Substance: METFORMIN HYDROCHLORIDE

REACTIONS (5)
  - Headache [Unknown]
  - Hyperhidrosis [Unknown]
  - Cardiac arrest [Fatal]
  - Pulse absent [Unknown]
  - Hypotension [Unknown]

NARRATIVE: CASE EVENT DATE: 20150515
